FAERS Safety Report 23329746 (Version 2)
Quarter: 2023Q4

REPORT INFORMATION
  Report Type: Spontaneous
  Country: US (occurrence: US)
  Receive Date: 20231222
  Receipt Date: 20231222
  Transmission Date: 20240109
  Serious: Yes (Other)
  Sender: FDA-Public Use
  Company Number: US-SA-SAC20231215000860

PATIENT
  Age: 69 Year
  Sex: Female

DRUGS (1)
  1. REZUROCK [Suspect]
     Active Substance: BELUMOSUDIL
     Indication: Chronic graft versus host disease
     Dosage: 200 MG, QD
     Route: 048
     Dates: start: 20230208

REACTIONS (8)
  - Craniofacial fracture [Unknown]
  - Loss of consciousness [Unknown]
  - Fall [Unknown]
  - Concussion [Unknown]
  - General physical health deterioration [Unknown]
  - Emotional disorder [Unknown]
  - Depressed mood [Unknown]
  - Cough [Unknown]

NARRATIVE: CASE EVENT DATE: 20231006
